FAERS Safety Report 15735714 (Version 1)
Quarter: 2018Q4

REPORT INFORMATION
  Report Type: Spontaneous
  Country: SG (occurrence: SG)
  Receive Date: 20181218
  Receipt Date: 20181218
  Transmission Date: 20190205
  Serious: Yes (Hospitalization, Other)
  Sender: FDA-Public Use
  Company Number: SG-IMPAX LABORATORIES, LLC-2018-IPXL-04073

PATIENT
  Age: 55 Year
  Sex: Female

DRUGS (6)
  1. LUGOLS IODINE [Suspect]
     Active Substance: IODINE\POTASSIUM IODIDE
     Indication: THYROTOXIC CRISIS
     Dosage: UNK UNK, EVERY 8HR
     Route: 048
  2. CHOLESTYRAMINE. [Suspect]
     Active Substance: CHOLESTYRAMINE
     Indication: THYROTOXIC CRISIS
     Dosage: 4 GRAM, TID
     Route: 048
  3. PROPYLTHIOURACIL. [Suspect]
     Active Substance: PROPYLTHIOURACIL
     Indication: THYROTOXIC CRISIS
     Dosage: 200 MILLIGRAM, EVERY 4HR
     Route: 048
  4. HYDROCORTISONE. [Suspect]
     Active Substance: HYDROCORTISONE
     Indication: THYROTOXIC CRISIS
     Dosage: 100 MILLIGRAM, EVERY 8HR
     Route: 042
  5. FUROSEMIDE. [Suspect]
     Active Substance: FUROSEMIDE
     Indication: THYROTOXIC CRISIS
     Dosage: UNK
     Route: 042
  6. AMOXICILLIN AND CLAVULA. POTASSIUM [Suspect]
     Active Substance: AMOXICILLIN\CLAVULANATE POTASSIUM
     Indication: THYROTOXIC CRISIS
     Dosage: UNK
     Route: 042

REACTIONS (6)
  - General physical health deterioration [Unknown]
  - Hypoxia [Unknown]
  - Hypotension [Unknown]
  - Metabolic acidosis [Unknown]
  - Mitral valve incompetence [Unknown]
  - Pulmonary hypertension [Unknown]
